FAERS Safety Report 14388423 (Version 3)
Quarter: 2020Q4

REPORT INFORMATION
  Report Type: Spontaneous
  Country: US (occurrence: US)
  Receive Date: 20180115
  Receipt Date: 20201015
  Transmission Date: 20210113
  Serious: Yes (Other)
  Sender: FDA-Public Use
  Company Number: US-SA-2017SA204422

PATIENT

DRUGS (32)
  1. DOLUTEGRAVIR [Concomitant]
     Active Substance: DOLUTEGRAVIR
     Route: 065
  2. EMTRICITABINE [Concomitant]
     Active Substance: EMTRICITABINE
     Route: 065
  3. MICROGESTIN [Concomitant]
     Active Substance: ETHINYL ESTRADIOL\NORETHINDRONE ACETATE
     Dosage: UNK UNK,UNK
     Route: 065
     Dates: start: 201201
  4. CYTOXAN [Concomitant]
     Active Substance: CYCLOPHOSPHAMIDE
     Indication: BREAST CANCER FEMALE
     Dosage: UNK UNK, Q3W
     Dates: start: 20151210, end: 20151210
  5. TAXOTERE [Suspect]
     Active Substance: DOCETAXEL
     Dosage: 90.6 MG; 53.6 MG
     Dates: start: 20160120, end: 20160120
  6. FLUCONAZOLE. [Concomitant]
     Active Substance: FLUCONAZOLE
     Dosage: UNK UNK,UNK
     Route: 065
     Dates: start: 2012
  7. DIPHENHYDRAMINE. [Concomitant]
     Active Substance: DIPHENHYDRAMINE
     Dosage: UNK UNK,UNK
     Route: 065
     Dates: start: 201201
  8. NORVIR [Concomitant]
     Active Substance: RITONAVIR
     Dosage: UNK UNK,UNK
     Route: 065
     Dates: start: 20080101
  9. COBICISTAT [Concomitant]
     Active Substance: COBICISTAT
     Dosage: UNK UNK,UNK
     Route: 065
     Dates: start: 2008
  10. VIRACEPT [Concomitant]
     Active Substance: NELFINAVIR MESYLATE
     Dosage: UNK
     Dates: start: 20080101
  11. ONDANSETRON [Concomitant]
     Active Substance: ONDANSETRON
     Dosage: UNK UNK,UNK
     Route: 065
     Dates: start: 2012
  12. DEXAMETHASONE. [Concomitant]
     Active Substance: DEXAMETHASONE
     Dosage: UNK UNK,UNK
     Route: 065
     Dates: start: 2012
  13. TIVICAY [Concomitant]
     Active Substance: DOLUTEGRAVIR SODIUM
     Dosage: UNK UNK,UNK
     Route: 065
     Dates: start: 20080101
  14. ABACAVIR SULFATE. [Concomitant]
     Active Substance: ABACAVIR SULFATE
     Dosage: UNK UNK,UNK
     Route: 065
     Dates: start: 2008
  15. NEUPOGEN [Concomitant]
     Active Substance: FILGRASTIM
     Dosage: UNK UNK,UNK
     Route: 065
     Dates: start: 2012
  16. TRUVADA [Concomitant]
     Active Substance: EMTRICITABINE\TENOFOVIR DISOPROXIL FUMARATE
     Dosage: UNK UNK,UNK
     Route: 065
     Dates: start: 20080101
  17. ZIDOVAL [Concomitant]
  18. MAXIDEX [Concomitant]
     Active Substance: DEXAMETHASONE
     Dosage: UNK
     Dates: start: 201201
  19. HYDROCHLOROTHIAZIDE. [Concomitant]
     Active Substance: HYDROCHLOROTHIAZIDE
     Dosage: UNK
     Route: 065
     Dates: start: 20151030, end: 201606
  20. RITONAVIR. [Concomitant]
     Active Substance: RITONAVIR
     Route: 065
  21. PREDNISONE. [Concomitant]
     Active Substance: PREDNISONE
     Dosage: UNK UNK,UNK
     Route: 065
     Dates: start: 201201
  22. PREZISTA [Concomitant]
     Active Substance: DARUNAVIR ETHANOLATE
     Dosage: UNK UNK,UNK
     Route: 065
     Dates: start: 20080101
  23. TIVICAY [Concomitant]
     Active Substance: DOLUTEGRAVIR SODIUM
     Dosage: UNK
     Dates: start: 20150918
  24. CYTOXAN [Concomitant]
     Active Substance: CYCLOPHOSPHAMIDE
     Dosage: UNK, Q3W
     Dates: start: 20160120, end: 20160120
  25. NEOSAR [Concomitant]
     Active Substance: CYCLOPHOSPHAMIDE
     Indication: BREAST CANCER FEMALE
     Route: 065
  26. PROCHLORPERAZINE. [Concomitant]
     Active Substance: PROCHLORPERAZINE
     Dosage: UNK UNK,UNK
     Route: 065
     Dates: start: 2012
  27. TAXOTERE [Suspect]
     Active Substance: DOCETAXEL
     Indication: BREAST CANCER FEMALE
     Dosage: 90.6 MG; 53.6 MG
     Dates: start: 20151210, end: 20151210
  28. DARUNAVIR [Concomitant]
     Active Substance: DARUNAVIR
     Route: 065
  29. NYSTATIN. [Concomitant]
     Active Substance: NYSTATIN
     Dosage: UNK UNK,UNK
     Route: 065
     Dates: start: 2012
  30. PREZCOBIX [Concomitant]
     Active Substance: COBICISTAT\DARUNAVIR ETHANOLATE
     Dosage: UNK
     Dates: start: 20080101
  31. LOSARTAN. [Concomitant]
     Active Substance: LOSARTAN
     Dosage: UNK
     Route: 065
     Dates: start: 20150129, end: 201606
  32. LAMIVUDINE. [Concomitant]
     Active Substance: LAMIVUDINE
     Dosage: UNK
     Dates: start: 20080101

REACTIONS (2)
  - Alopecia [Recovering/Resolving]
  - Psychological trauma [Unknown]

NARRATIVE: CASE EVENT DATE: 201607
